FAERS Safety Report 10741692 (Version 3)
Quarter: 2015Q2

REPORT INFORMATION
  Report Type: Spontaneous
  Country: US (occurrence: None)
  Receive Date: 20150123
  Receipt Date: 20150408
  Transmission Date: 20150821
  Serious: Yes (Life-Threatening, Hospitalization, Other)
  Sender: FDA-Public Use
  Company Number: ADR-2014-01959

PATIENT
  Age: 30 Year
  Sex: Male

DRUGS (6)
  1. MUCINEX [Suspect]
     Active Substance: GUAIFENESIN
  2. ALBUTEROL. [Suspect]
     Active Substance: ALBUTEROL
  3. PULMICORT TURBUHALER [Suspect]
     Active Substance: BUDESONIDE
  4. FLONASE [Suspect]
     Active Substance: FLUTICASONE PROPIONATE
  5. ZOLOFT [Suspect]
     Active Substance: SERTRALINE HYDROCHLORIDE
  6. LIORESAL [Suspect]
     Active Substance: BACLOFEN
     Indication: MUSCLE SPASTICITY
     Dosage: 1301.5 MCG/DAY; SEE B5
     Dates: start: 20110420, end: 20141021

REACTIONS (13)
  - Pyrexia [None]
  - Device alarm issue [None]
  - Respiratory distress [None]
  - Device malfunction [None]
  - Device infusion issue [None]
  - Vomiting [None]
  - Apparent death [None]
  - Device power source issue [None]
  - Device battery issue [None]
  - Muscle spasticity [None]
  - Nausea [None]
  - Rash [None]
  - Device damage [None]

NARRATIVE: CASE EVENT DATE: 20141014
